FAERS Safety Report 7112606-X (Version None)
Quarter: 2010Q4

REPORT INFORMATION
  Report Type: 
  Country: None (occurrence: None)
  Receive Date: 20101119
  Receipt Date: 20100315
  Transmission Date: 20110411
  Serious: No
  Sender: FDA-Public Use
  Company Number: US-TEVA-229110USA

PATIENT
  Age: 58 Year
  Sex: Male
  Weight: 63.5 kg

DRUGS (9)
  1. ALBUTEROL SULFATE AUTOHALER [Suspect]
     Indication: ASTHMA
     Route: 055
     Dates: start: 20090101, end: 20090101
  2. LEVOSALBUTAMOL [Concomitant]
     Indication: ASTHMA
     Dosage: 90 UG
     Route: 055
     Dates: start: 20091001, end: 20090101
  3. CICLESONIDE [Concomitant]
     Dates: start: 20091201
  4. OMNARIS [Concomitant]
     Dates: start: 20100101
  5. SALBUTAMOL [Concomitant]
     Dates: end: 20091001
  6. MONTELUKAST [Concomitant]
  7. HYDROXYZINE [Concomitant]
  8. ALLERGY MEDICATION [Concomitant]
  9. ANTI-ASTHMATICS [Concomitant]

REACTIONS (1)
  - NERVOUSNESS [None]
